FAERS Safety Report 5554958-8 (Version None)
Quarter: 2007Q4

REPORT INFORMATION
  Report Type: 
  Country: None (occurrence: None)
  Receive Date: 20071213
  Receipt Date: 20071205
  Transmission Date: 20080405
  Serious: Yes (Disabling)
  Sender: FDA-Public Use
  Company Number: DK-ASTRAZENECA-2007SE05281

PATIENT
  Age: 20196 Day
  Sex: Male
  Weight: 78 kg

DRUGS (6)
  1. NAROPIN [Suspect]
     Indication: NEUROMUSCULAR BLOCKADE
     Route: 053
     Dates: start: 20070712, end: 20070712
  2. PROPOFOL [Concomitant]
     Indication: ANAESTHESIA
     Route: 042
     Dates: start: 20070712, end: 20070712
  3. ULTIVA [Concomitant]
     Indication: ANAESTHESIA
     Route: 042
     Dates: start: 20070712, end: 20070712
  4. ZINACEF [Concomitant]
     Indication: INFECTION PROPHYLAXIS
     Route: 030
     Dates: start: 20070712, end: 20070712
  5. EFEDRIN [Concomitant]
     Indication: HYPOTENSION
     Dosage: STRUCTURE DOSAGE NUMBER 50 MG
     Route: 030
     Dates: start: 20070712, end: 20070712
  6. PAMOL [Concomitant]
     Indication: PAIN
     Route: 048
     Dates: start: 20070712, end: 20070712

REACTIONS (2)
  - NERVE INJURY [None]
  - PARALYSIS [None]
